FAERS Safety Report 6314849-1 (Version None)
Quarter: 2009Q3

REPORT INFORMATION
  Report Type: 
  Country: None (occurrence: None)
  Receive Date: 20090819
  Receipt Date: 20090810
  Transmission Date: 20100115
  Serious: Yes (Other)
  Sender: FDA-Public Use
  Company Number: US-PFIZER INC-2005053120

PATIENT
  Sex: Female
  Weight: 59 kg

DRUGS (9)
  1. PROVERA [Suspect]
     Indication: HORMONE REPLACEMENT THERAPY
     Dosage: UNK
     Route: 048
     Dates: start: 19820101, end: 20010101
  2. MEDROXYPROGESTERONE AND MEDROXYPROGESTERONE ACETATE [Suspect]
     Indication: HORMONE REPLACEMENT THERAPY
     Dosage: 2.5 MG, UNK
     Dates: start: 19950101, end: 19960101
  3. PREMARIN [Suspect]
     Indication: HORMONE REPLACEMENT THERAPY
     Dosage: 0.625 MG, UNK
     Route: 065
     Dates: start: 19950101, end: 19960101
  4. PREMPRO [Suspect]
     Indication: HORMONE REPLACEMENT THERAPY
     Dosage: 0.625/2.5 MG, UNK
     Route: 065
     Dates: start: 19960101, end: 20010101
  5. PRILOSEC [Concomitant]
     Indication: DYSPEPSIA
     Dosage: 20 MG, UNK
     Dates: start: 19950101, end: 20050101
  6. PRILOSEC [Concomitant]
     Indication: CHEST PAIN
  7. COZAAR [Concomitant]
     Indication: HYPERTENSION
     Dosage: UNK
     Dates: end: 20050101
  8. RYTHMOL [Concomitant]
     Indication: ARRHYTHMIA
     Dosage: 150 MG, UNK
     Dates: end: 20010101
  9. TOPROL-XL [Concomitant]
     Indication: HYPERTENSION
     Dosage: UNK
     Dates: end: 20050101

REACTIONS (1)
  - BREAST CANCER FEMALE [None]
